FAERS Safety Report 8349838-9 (Version None)
Quarter: 2012Q2

REPORT INFORMATION
  Report Type: 
  Country: None (occurrence: None)
  Receive Date: 20120510
  Receipt Date: 20120501
  Transmission Date: 20120825
  Serious: Yes (Hospitalization, Other)
  Sender: FDA-Public Use
  Company Number: JP-TEVA-2011003093

PATIENT
  Sex: Female
  Weight: 50 kg

DRUGS (19)
  1. RITUXIMAB [Suspect]
     Indication: B-CELL LYMPHOMA
     Route: 042
     Dates: start: 20101215, end: 20101215
  2. RITUXIMAB [Suspect]
     Route: 042
     Dates: start: 20110309, end: 20110309
  3. GRANISETRON HCL [Concomitant]
     Dosage: 3 MILLIGRAM;
     Dates: start: 20101216, end: 20110211
  4. BENDAMUSTINE HYDROCHLORIDE [Suspect]
     Indication: B-CELL LYMPHOMA
     Dosage: 90 MG/M2;
     Route: 042
     Dates: start: 20101216, end: 20101217
  5. BENDAMUSTINE HYDROCHLORIDE [Suspect]
     Route: 042
     Dates: start: 20110512, end: 20110513
  6. RITUXIMAB [Suspect]
     Route: 042
     Dates: start: 20110112, end: 20110112
  7. ALLOPURINOL [Concomitant]
     Dosage: 100 MILLIGRAM;
  8. BENDAMUSTINE HYDROCHLORIDE [Suspect]
     Dosage: 90 MG/M2;
     Route: 042
     Dates: start: 20110113, end: 20110114
  9. BENDAMUSTINE HYDROCHLORIDE [Suspect]
     Dosage: 90 MG/M2;
     Route: 042
     Dates: start: 20110407, end: 20110408
  10. SULFAMETHOXAZOLE AND TRIMETHOPRIM [Concomitant]
     Dosage: 1 TABLET;
  11. RITUXIMAB [Suspect]
     Route: 042
     Dates: start: 20110209, end: 20110209
  12. FAMOTIDINE [Concomitant]
     Dosage: 40 MILLIGRAM;
  13. FOSCARNET SODIUM [Concomitant]
     Dates: start: 20111208, end: 20120324
  14. BENDAMUSTINE HYDROCHLORIDE [Suspect]
     Dosage: 90 MG/M2;
     Route: 042
     Dates: start: 20110310, end: 20110311
  15. RITUXIMAB [Suspect]
     Route: 042
     Dates: start: 20110406, end: 20110406
  16. RITUXIMAB [Suspect]
     Route: 042
     Dates: start: 20110511, end: 20110511
  17. BENDAMUSTINE HYDROCHLORIDE [Suspect]
     Dosage: 90 MG/M2;
     Route: 042
     Dates: start: 20110210, end: 20110211
  18. EZETIMIBE [Concomitant]
     Indication: HYPERLIPIDAEMIA
     Dosage: 10 MILLIGRAM;
  19. ACYCLOVIR [Concomitant]
     Dosage: 200 MILLIGRAM;
     Dates: end: 20110621

REACTIONS (11)
  - NEUTROPHIL COUNT DECREASED [None]
  - WHITE BLOOD CELL COUNT DECREASED [None]
  - PLATELET COUNT DECREASED [None]
  - MALAISE [None]
  - CYTOMEGALOVIRUS INFECTION [None]
  - LYMPHOCYTE COUNT DECREASED [None]
  - DECREASED APPETITE [None]
  - ALANINE AMINOTRANSFERASE INCREASED [None]
  - HYPOKALAEMIA [None]
  - NAUSEA [None]
  - PYREXIA [None]
